FAERS Safety Report 5126952-2 (Version None)
Quarter: 2006Q4

REPORT INFORMATION
  Report Type: 
  Country: None (occurrence: None)
  Receive Date: 20061013
  Receipt Date: 20060925
  Transmission Date: 20070319
  Serious: Yes (Hospitalization, Other)
  Sender: FDA-Public Use
  Company Number: US-AMGEN-US194674

PATIENT
  Sex: Male
  Weight: 24 kg

DRUGS (8)
  1. NEULASTA [Suspect]
     Indication: CHEMOTHERAPY
     Route: 065
     Dates: start: 20060909, end: 20060909
  2. ARA-C [Concomitant]
     Route: 065
     Dates: start: 20060906, end: 20060908
  3. ELSPAR [Concomitant]
     Route: 065
     Dates: start: 20060906, end: 20060908
  4. MIRALAX [Concomitant]
     Route: 065
     Dates: start: 20060910, end: 20060911
  5. MORPHINE [Concomitant]
     Route: 065
     Dates: start: 20060917, end: 20060919
  6. ZANTAC [Concomitant]
     Dates: start: 20060910, end: 20060919
  7. ZOFRAN [Concomitant]
     Route: 065
     Dates: start: 20060910, end: 20060919
  8. SENNA [Concomitant]
     Route: 065
     Dates: start: 20060910, end: 20060919

REACTIONS (5)
  - BLAST CELLS [None]
  - BLAST CELLS PRESENT [None]
  - FEBRILE NEUTROPENIA [None]
  - PYREXIA [None]
  - SHIFT TO THE LEFT [None]
